FAERS Safety Report 4998550-2 (Version None)
Quarter: 2006Q2

REPORT INFORMATION
  Report Type: 
  Country: None (occurrence: None)
  Receive Date: 20060508
  Receipt Date: 20060424
  Transmission Date: 20061013
  Serious: Yes (Hospitalization)
  Sender: FDA-Public Use
  Company Number: S06-FRA-01753-01

PATIENT
  Age: 82 Year
  Sex: Female

DRUGS (5)
  1. CITALOPRAM HYDROBROMIDE [Suspect]
     Indication: DEPRESSION
     Dosage: 1 UNITS QD PO
     Route: 048
     Dates: start: 20060201, end: 20060224
  2. TRAMADOL HCL [Suspect]
     Dosage: 100 MG QD PO
     Route: 048
     Dates: start: 20060218, end: 20060222
  3. KARDEGIC (ACETYLSALICYLATE LYSINE) [Concomitant]
  4. DI-ANTALVIC [Concomitant]
  5. AMLODIPINE BESYLATE [Concomitant]

REACTIONS (7)
  - BLOOD PRESSURE INCREASED [None]
  - DRUG INTERACTION [None]
  - NAUSEA [None]
  - PYREXIA [None]
  - SEROTONIN SYNDROME [None]
  - TREMOR [None]
  - VOMITING [None]
